FAERS Safety Report 16583331 (Version 5)
Quarter: 2021Q1

REPORT INFORMATION
  Report Type: Spontaneous
  Country: US (occurrence: US)
  Receive Date: 20190717
  Receipt Date: 20210218
  Transmission Date: 20210419
  Serious: No
  Sender: FDA-Public Use
  Company Number: US-PFIZER INC-2019299076

PATIENT
  Age: 61 Year
  Sex: Female

DRUGS (7)
  1. CELEBREX [Concomitant]
     Active Substance: CELECOXIB
     Dosage: 200 MG
  2. HYDROCHLOROTHIAZIDE. [Concomitant]
     Active Substance: HYDROCHLOROTHIAZIDE
     Dosage: 12.5 MG
  3. CINNAMON. [Concomitant]
     Active Substance: CINNAMON
     Dosage: 500 MG
  4. METOPROLOL SUCCINATE. [Concomitant]
     Active Substance: METOPROLOL SUCCINATE
     Dosage: UNK
  5. XELJANZ XR [Suspect]
     Active Substance: TOFACITINIB CITRATE
     Indication: RHEUMATOID ARTHRITIS
     Dosage: 11 MG, DAILY
     Route: 048
     Dates: start: 2019
  6. GARLIC [ALLIUM SATIVUM] [Concomitant]
     Active Substance: GARLIC
     Dosage: 1000 MG
  7. SYNTHROID [Concomitant]
     Active Substance: LEVOTHYROXINE SODIUM
     Dosage: 0.112 UG

REACTIONS (2)
  - Blood cholesterol increased [Not Recovered/Not Resolved]
  - Secretion discharge [Recovering/Resolving]

NARRATIVE: CASE EVENT DATE: 2019
